FAERS Safety Report 18261613 (Version 1)
Quarter: 2020Q3

REPORT INFORMATION
  Report Type: Spontaneous
  Country: US (occurrence: US)
  Receive Date: 20200911
  Receipt Date: 20200911
  Transmission Date: 20201103
  Serious: Yes (Other)
  Sender: FDA-Public Use
  Company Number: None

PATIENT
  Age: 50 Year
  Sex: Female

DRUGS (3)
  1. MELOXICAM 7.5 [Concomitant]
     Active Substance: MELOXICAM
     Dates: start: 20200102
  2. LEFLUNOMIDE 10MG [Concomitant]
     Dates: start: 20200102
  3. HUMIRA [Suspect]
     Active Substance: ADALIMUMAB
     Indication: RHEUMATOID ARTHRITIS
     Dosage: ?          OTHER FREQUENCY:EVERY OTHER WEEK;?
     Route: 058
     Dates: start: 20200702

REACTIONS (2)
  - Pain [None]
  - Rheumatoid arthritis [None]

NARRATIVE: CASE EVENT DATE: 20200911
